FAERS Safety Report 17882173 (Version 1)
Quarter: 2020Q2

REPORT INFORMATION
  Report Type: Spontaneous
  Country: US (occurrence: US)
  Receive Date: 20200610
  Receipt Date: 20200610
  Transmission Date: 20200714
  Serious: Yes (Other)
  Sender: FDA-Public Use
  Company Number: US-ASTRAZENECA-2020SE73671

PATIENT
  Age: 19848 Day
  Sex: Male
  Weight: 56.7 kg

DRUGS (38)
  1. AZITHROMYCIN ANHYDROUS. [Concomitant]
     Active Substance: AZITHROMYCIN ANHYDROUS
     Indication: INFECTION
     Dates: start: 2016
  2. ADVIL [Concomitant]
     Active Substance: IBUPROFEN
     Indication: SLEEP DISORDER
     Dates: start: 2001, end: 2004
  3. BACTRIM [Concomitant]
     Active Substance: SULFAMETHOXAZOLE\TRIMETHOPRIM
  4. PANTOPRAZOLE [Suspect]
     Active Substance: PANTOPRAZOLE
     Indication: GASTROOESOPHAGEAL REFLUX DISEASE
     Dosage: 40.0MG UNKNOWN
     Route: 048
     Dates: start: 20161018
  5. TERBINAFINE. [Concomitant]
     Active Substance: TERBINAFINE
     Indication: INFECTION
     Dates: start: 2017
  6. PREZISTA [Concomitant]
     Active Substance: DARUNAVIR ETHANOLATE
     Indication: HIV INFECTION
     Dates: start: 2013
  7. ZERIT [Concomitant]
     Active Substance: STAVUDINE
  8. ASPIRIN. [Concomitant]
     Active Substance: ASPIRIN
  9. PANTOPRAZOLE [Suspect]
     Active Substance: PANTOPRAZOLE
     Indication: GASTROOESOPHAGEAL REFLUX DISEASE
     Dosage: 40.0MG UNKNOWN
     Route: 065
     Dates: start: 2016
  10. SAQUINAVIR [Concomitant]
     Active Substance: SAQUINAVIR
  11. DIFLUCAN [Concomitant]
     Active Substance: FLUCONAZOLE
  12. ISENTRESS [Concomitant]
     Active Substance: RALTEGRAVIR POTASSIUM
     Indication: HIV INFECTION
     Dates: start: 2013
  13. NORVIR [Concomitant]
     Active Substance: RITONAVIR
     Indication: HIV INFECTION
     Dates: start: 2013
  14. TRUVADA [Concomitant]
     Active Substance: EMTRICITABINE\TENOFOVIR DISOPROXIL FUMARATE
  15. BIAXIN [Concomitant]
     Active Substance: CLARITHROMYCIN
  16. COMBIVIR [Concomitant]
     Active Substance: LAMIVUDINE\ZIDOVUDINE
  17. ZIAGEN [Concomitant]
     Active Substance: ABACAVIR SULFATE
  18. PREVACID [Suspect]
     Active Substance: LANSOPRAZOLE
     Indication: GASTROOESOPHAGEAL REFLUX DISEASE
     Dosage: 30.0MG UNKNOWN
     Route: 065
     Dates: start: 2005, end: 2010
  19. FLUARIX NOS [Concomitant]
     Active Substance: INFLUENZA VIRUS VACCINE
  20. SUSTIVA [Concomitant]
     Active Substance: EFAVIRENZ
  21. OMEPRAZOLE. [Suspect]
     Active Substance: OMEPRAZOLE
     Indication: GASTROOESOPHAGEAL REFLUX DISEASE
     Dosage: 40.0MG UNKNOWN
     Route: 048
     Dates: start: 20131107
  22. ZANTAC [Concomitant]
     Active Substance: RANITIDINE HYDROCHLORIDE
     Dates: start: 2016, end: 2017
  23. CICLOPIROX. [Concomitant]
     Active Substance: CICLOPIROX
     Dates: start: 2016, end: 2017
  24. DOXYCYCLINE HYCLATE. [Concomitant]
     Active Substance: DOXYCYCLINE HYCLATE
  25. LEXIVA [Concomitant]
     Active Substance: FOSAMPRENAVIR CALCIUM
  26. KALETRA [Concomitant]
     Active Substance: LOPINAVIR\RITONAVIR
  27. MULTIVITAMINS [Concomitant]
     Active Substance: VITAMINS
     Indication: HYPOVITAMINOSIS
     Dates: start: 2004
  28. CEFDINIR. [Concomitant]
     Active Substance: CEFDINIR
  29. LISINOPRIL. [Concomitant]
     Active Substance: LISINOPRIL
  30. OMEPRAZOLE. [Suspect]
     Active Substance: OMEPRAZOLE
     Indication: GASTROOESOPHAGEAL REFLUX DISEASE
     Dosage: 20.0MG UNKNOWN
     Route: 065
     Dates: start: 2013, end: 2018
  31. LOSARTAN POTASSIUM. [Concomitant]
     Active Substance: LOSARTAN POTASSIUM
     Indication: HYPERTENSION
     Dates: start: 2017
  32. BENADRYL [Concomitant]
     Active Substance: DIPHENHYDRAMINE HYDROCHLORIDE
     Indication: COUGH
     Dates: start: 2001, end: 2003
  33. FAMOTIDINE. [Concomitant]
     Active Substance: FAMOTIDINE
  34. RANITIDINE. [Concomitant]
     Active Substance: RANITIDINE
  35. FLUCELVAX NOS [Concomitant]
     Active Substance: INFLUENZA A VIRUS A/BRISBANE/10/2010 (H1N1) ANTIGEN (MDCK CELL DERIVED, PROPIOLACTONE INACTIVATED)\INFLUENZA A VIRUS A/VICTORIA/361/2011 IVR-165 (H3N2) ANTIGEN (MDCK CELL DERIVED, PROPIOLACTONE INACTIVATED)\INFLUENZA B VIRUS B/WISCONSIN/1/2010) ANTIGEN (MDCK CELL DERIVED, PROPIOLACTONE INACTIVATED)
  36. TETRACAINE. [Concomitant]
     Active Substance: TETRACAINE
  37. VITAMIN D [Concomitant]
     Active Substance: VITAMIN D NOS
  38. TIVICAY [Concomitant]
     Active Substance: DOLUTEGRAVIR SODIUM

REACTIONS (3)
  - Chronic kidney disease [Not Recovered/Not Resolved]
  - Renal failure [Unknown]
  - Tubulointerstitial nephritis [Unknown]

NARRATIVE: CASE EVENT DATE: 20090119
